FAERS Safety Report 7889384-X (Version None)
Quarter: 2011Q4

REPORT INFORMATION
  Report Type: 
  Country: None (occurrence: None)
  Receive Date: 20111103
  Receipt Date: 20111026
  Transmission Date: 20120403
  Serious: Yes (Hospitalization)
  Sender: FDA-Public Use
  Company Number: US-JNJFOC-20111013092

PATIENT
  Sex: Male
  Weight: 37.2 kg

DRUGS (12)
  1. ZYRTEC [Concomitant]
  2. REMICADE [Suspect]
     Indication: INFLAMMATORY BOWEL DISEASE
     Route: 042
     Dates: start: 20100823, end: 20110820
  3. OXYCODONE HCL [Concomitant]
  4. TYLENOL-500 [Concomitant]
  5. ZOFRAN [Concomitant]
  6. ANTIBIOTICS [Concomitant]
     Indication: INFLAMMATORY BOWEL DISEASE
  7. PREDNISONE [Concomitant]
  8. ATIVAN [Concomitant]
  9. CIMZIA [Concomitant]
     Dates: start: 20110101
  10. MESALAMINE [Concomitant]
     Indication: INFLAMMATORY BOWEL DISEASE
     Route: 048
  11. PRILOSEC [Concomitant]
  12. CLONAZEPAM [Concomitant]

REACTIONS (4)
  - MAJOR DEPRESSION [None]
  - SOCIAL AVOIDANT BEHAVIOUR [None]
  - ANXIETY [None]
  - DEPRESSION [None]
